FAERS Safety Report 6171439-1 (Version None)
Quarter: 2009Q2

REPORT INFORMATION
  Report Type: 
  Country: None (occurrence: None)
  Receive Date: 20090429
  Receipt Date: 20090324
  Transmission Date: 20091009
  Serious: No
  Sender: FDA-Public Use
  Company Number: US-BAYER-200915373NA

PATIENT
  Age: 40 Year
  Sex: Female
  Weight: 64 kg

DRUGS (4)
  1. YAZ [Suspect]
     Indication: ENDOMETRIOSIS
     Route: 048
     Dates: start: 20081201
  2. ATEROL [Concomitant]
     Indication: ATTENTION DEFICIT/HYPERACTIVITY DISORDER
  3. MIRALAX [Concomitant]
     Indication: CONSTIPATION
     Dates: start: 20060101
  4. ALLERGY MEDICATION NOS [Concomitant]

REACTIONS (3)
  - NO ADVERSE EVENT [None]
  - PELVIC PAIN [None]
  - WEIGHT INCREASED [None]
